FAERS Safety Report 6169048-3 (Version None)
Quarter: 2009Q2

REPORT INFORMATION
  Report Type: 
  Country: None (occurrence: None)
  Receive Date: 20090427
  Receipt Date: 20090417
  Transmission Date: 20091009
  Serious: Yes (Hospitalization)
  Sender: FDA-Public Use
  Company Number: GB-PFIZER INC-2009191440

PATIENT

DRUGS (9)
  1. DALTEPARIN SODIUM [Suspect]
     Indication: LUNG NEOPLASM MALIGNANT
     Dosage: UNK
     Dates: start: 20090225, end: 20090309
  2. CARBOPLATIN [Suspect]
     Dosage: 500 MG, UNK
     Route: 042
     Dates: start: 20090302, end: 20090303
  3. ETOPOSIDE [Suspect]
     Dosage: 160 MG, UNK
     Route: 042
     Dates: start: 20090302, end: 20090303
  4. GABAPENTIN [Concomitant]
     Dosage: 900 MG, UNK
     Route: 048
  5. CELECOXIB [Concomitant]
     Dosage: 200 MG, UNK
     Route: 048
  6. DIAZEPAM [Concomitant]
     Dosage: UNK
     Route: 048
  7. LORAZEPAM [Concomitant]
     Dosage: 2 MG, UNK
     Route: 048
     Dates: start: 20070601, end: 20090316
  8. TRAMADOL [Concomitant]
     Dosage: 150 MG, UNK
     Route: 048
  9. CLONAZEPAM [Concomitant]
     Dosage: 500 MG, UNK
     Route: 048
     Dates: start: 20080101

REACTIONS (1)
  - DYSPNOEA [None]
